FAERS Safety Report 4587941-X (Version None)
Quarter: 2005Q1

REPORT INFORMATION
  Report Type: 
  Country: None (occurrence: None)
  Receive Date: 20050215
  Receipt Date: 20050128
  Transmission Date: 20050727
  Serious: Yes (Hospitalization)
  Sender: FDA-Public Use
  Company Number: 2005-DE-00473DE

PATIENT
  Age: 2 Year
  Sex: Female

DRUGS (1)
  1. SIFROL (PRAMIPEXOLE DIHYDROCHLORIDE) (TA) (PRAMIPEXOLE) [Suspect]
     Indication: ACCIDENTAL EXPOSURE
     Dosage: 0.18 MG (0.35 MG, 1 IN 1 ONCE)
     Route: 048
     Dates: start: 20050128, end: 20050128

REACTIONS (2)
  - AGITATION [None]
  - VOMITING [None]
